FAERS Safety Report 9498488 (Version 3)
Quarter: 2013Q4

REPORT INFORMATION
  Report Type: Spontaneous
  Country: US (occurrence: US)
  Receive Date: 20130904
  Receipt Date: 20131104
  Transmission Date: 20140711
  Serious: Yes (Hospitalization)
  Sender: FDA-Public Use
  Company Number: US-GLAXOSMITHKLINE-A1026670A

PATIENT
  Age: 51 Year
  Sex: Female

DRUGS (2)
  1. FLOLAN [Suspect]
     Indication: PULMONARY ARTERIAL HYPERTENSION
     Dosage: 40.57NGKM CONTINUOUS
     Route: 042
     Dates: start: 20130218
  2. TRACLEER [Concomitant]

REACTIONS (13)
  - Skin discolouration [Unknown]
  - Dry skin [Unknown]
  - Pruritus [Unknown]
  - Pain [Unknown]
  - Therapy cessation [Unknown]
  - Hospitalisation [Unknown]
  - Nausea [Unknown]
  - Hypotension [Unknown]
  - Hypokalaemia [Unknown]
  - Ascites [Unknown]
  - Blood creatinine increased [Unknown]
  - Cardiac failure [Unknown]
  - Diarrhoea [Unknown]
